FAERS Safety Report 6255323-0 (Version None)
Quarter: 2009Q3

REPORT INFORMATION
  Report Type: 
  Country: None (occurrence: None)
  Receive Date: 20090702
  Receipt Date: 20090619
  Transmission Date: 20100115
  Serious: Yes (Other)
  Sender: FDA-Public Use
  Company Number: US-PFIZER INC-2009232069

PATIENT
  Sex: Female
  Weight: 77.098 kg

DRUGS (1)
  1. LYRICA [Suspect]
     Indication: MYALGIA
     Dosage: 100 MG, 1X/DAY
     Route: 048
     Dates: start: 20090101, end: 20090508

REACTIONS (3)
  - ABDOMINAL DISCOMFORT [None]
  - CARBOHYDRATE ANTIGEN 125 INCREASED [None]
  - CONSTIPATION [None]
